FAERS Safety Report 12690342 (Version 3)
Quarter: 2016Q4

REPORT INFORMATION
  Report Type: Report from Study
  Country: US (occurrence: US)
  Receive Date: 20160826
  Receipt Date: 20161003
  Transmission Date: 20170207
  Serious: Yes (Other)
  Sender: FDA-Public Use
  Company Number: US-PFIZER INC-2016405391

PATIENT
  Age: 65 Year
  Sex: Male

DRUGS (2)
  1. ANASTROZOLE. [Suspect]
     Active Substance: ANASTROZOLE
     Dosage: UNK
     Dates: start: 201603
  2. PALBOCICLIB [Suspect]
     Active Substance: PALBOCICLIB
     Indication: BREAST CANCER STAGE IV
     Dosage: 125 MG, UNK
     Dates: start: 201603

REACTIONS (3)
  - Fatigue [Unknown]
  - Product use issue [Unknown]
  - Pancytopenia [Unknown]
